FAERS Safety Report 15147394 (Version 1)
Quarter: 2018Q3

REPORT INFORMATION
  Report Type: Spontaneous
  Country: IT (occurrence: IT)
  Receive Date: 20180716
  Receipt Date: 20180716
  Transmission Date: 20181010
  Serious: Yes (Life-Threatening, Other)
  Sender: FDA-Public Use
  Company Number: IT-ACCORD-069431

PATIENT
  Age: 52 Year
  Sex: Male

DRUGS (2)
  1. CARBOPLATIN. [Suspect]
     Active Substance: CARBOPLATIN
     Indication: UNDIFFERENTIATED NASOPHARYNGEAL CARCINOMA
     Route: 042
     Dates: start: 20170831, end: 20171123
  2. FLUOROURACIL. [Suspect]
     Active Substance: FLUOROURACIL
     Indication: UNDIFFERENTIATED NASOPHARYNGEAL CARCINOMA
     Route: 041
     Dates: start: 20170831, end: 20171123

REACTIONS (3)
  - Off label use [Unknown]
  - Leukopenia [Recovered/Resolved]
  - Neutropenia [Recovered/Resolved]

NARRATIVE: CASE EVENT DATE: 20171129
